FAERS Safety Report 5813994-4 (Version None)
Quarter: 2008Q3

REPORT INFORMATION
  Report Type: 
  Country: None (occurrence: None)
  Receive Date: 20080715
  Receipt Date: 20080708
  Transmission Date: 20090109
  Serious: Yes (Hospitalization)
  Sender: FDA-Public Use
  Company Number: 2008SP011613

PATIENT
  Age: 47 Year
  Sex: Female

DRUGS (2)
  1. PEG-INTRON [Suspect]
     Indication: HEPATITIS C
     Dates: start: 20080222
  2. REBETOL [Suspect]
     Indication: HEPATITIS C
     Dosage: ;PO
     Route: 048
     Dates: start: 20080222

REACTIONS (7)
  - ANAEMIA [None]
  - DEHYDRATION [None]
  - GASTROENTERITIS SALMONELLA [None]
  - GINGIVAL INFECTION [None]
  - HEADACHE [None]
  - PALPITATIONS [None]
  - TREMOR [None]
